FAERS Safety Report 20492941 (Version 3)
Quarter: 2022Q1

REPORT INFORMATION
  Report Type: Other
  Country: CA (occurrence: None)
  Receive Date: 20220219
  Receipt Date: 20220323
  Transmission Date: 20220423
  Serious: No
  Sender: FDA-Public Use
  Company Number: CA-ROCHE-3025030

PATIENT
  Age: 17 Year
  Sex: Female

DRUGS (4)
  1. OCREVUS [Suspect]
     Active Substance: OCRELIZUMAB
     Indication: Relapsing-remitting multiple sclerosis
     Dosage: 300 MG AT DAY 0 AND 14, THEN 600 MG EVERY 6 MONTHS
     Route: 042
     Dates: start: 20210921
  2. COVID-19 VACCINE [Concomitant]
     Dates: start: 20210518
  3. COVID-19 VACCINE [Concomitant]
     Dates: start: 20210625
  4. COVID-19 VACCINE [Concomitant]
     Dates: start: 20220207

REACTIONS (2)
  - SARS-CoV-2 test positive [Recovered/Resolved]
  - Tooth disorder [Unknown]

NARRATIVE: CASE EVENT DATE: 20220108
